FAERS Safety Report 15491450 (Version 1)
Quarter: 2018Q4

REPORT INFORMATION
  Report Type: Other
  Country: GB (occurrence: GB)
  Receive Date: 20181012
  Receipt Date: 20181012
  Transmission Date: 20190205
  Serious: No
  Sender: FDA-Public Use
  Company Number: GB-LUPIN PHARMACEUTICALS INC.-2018-02391

PATIENT
  Age: 79 Year
  Sex: Female
  Weight: 92 kg

DRUGS (16)
  1. METFORMIN [Concomitant]
     Active Substance: METFORMIN HYDROCHLORIDE
     Indication: ILL-DEFINED DISORDER
     Dosage: UNK UNK, QD, WITH EVENING MEAL
     Route: 065
     Dates: start: 20140304
  2. CEFALEXIN [Suspect]
     Active Substance: CEPHALEXIN
     Indication: PRODUCT USED FOR UNKNOWN INDICATION
     Dosage: UNK
     Dates: start: 20180302
  3. APIXABAN [Concomitant]
     Active Substance: APIXABAN
     Indication: ILL-DEFINED DISORDER
     Dosage: UNK UNK, QD, AT NIGHT
     Route: 065
     Dates: start: 20180117
  4. CO-BENELDOPA [Concomitant]
     Active Substance: BENSERAZIDE HYDROCHLORIDE\LEVODOPA
     Indication: ILL-DEFINED DISORDER
     Dosage: UNK UNK, TID
     Route: 065
     Dates: start: 20170210
  5. BENDROFLUMETHIAZIDE [Concomitant]
     Active Substance: BENDROFLUMETHIAZIDE
     Indication: ILL-DEFINED DISORDER
     Dosage: UNK UNK, QD, IN THE MORNING
     Route: 065
     Dates: start: 20160531
  6. BISOPROLOL [Concomitant]
     Active Substance: BISOPROLOL
     Indication: ILL-DEFINED DISORDER
     Dosage: UNK UNK, QD
     Route: 065
     Dates: start: 20170630
  7. NITROFURANTOIN. [Concomitant]
     Active Substance: NITROFURANTOIN
     Indication: ILL-DEFINED DISORDER
     Dosage: EVERY DAY
     Route: 065
     Dates: start: 20171113
  8. GLYCERYL TRINITRATE [Concomitant]
     Active Substance: NITROGLYCERIN
     Indication: ILL-DEFINED DISORDER
     Dosage: ONE PUFF AS NEEDED
     Dates: start: 20170210
  9. CLOPIDOGREL [Concomitant]
     Active Substance: CLOPIDOGREL BISULFATE
     Indication: ILL-DEFINED DISORDER
     Dosage: UNK UNK, QD
     Route: 065
     Dates: start: 20170630, end: 20180117
  10. ATORVASTATIN [Concomitant]
     Active Substance: ATORVASTATIN
     Indication: ILL-DEFINED DISORDER
     Dosage: UNK UNK, QD, EACH NIGHT
     Route: 065
     Dates: start: 20151106
  11. NICORANDIL [Concomitant]
     Active Substance: NICORANDIL
     Indication: ILL-DEFINED DISORDER
     Dosage: UNK UNK, BID
     Route: 065
     Dates: start: 20100908
  12. LANSOPRAZOLE. [Concomitant]
     Active Substance: LANSOPRAZOLE
     Indication: ILL-DEFINED DISORDER
     Dosage: UNK UNK, QD, EACH MORNING
     Route: 065
     Dates: start: 20100908
  13. VENTOLIN [Concomitant]
     Active Substance: ALBUTEROL SULFATE
     Indication: ILL-DEFINED DISORDER
     Dosage: AS NEEDED
     Route: 045
     Dates: start: 20180216
  14. LACTULOSE. [Concomitant]
     Active Substance: LACTULOSE
     Indication: ILL-DEFINED DISORDER
     Dosage: 10 ML, BID
     Route: 065
     Dates: start: 20170210
  15. RAMIPRIL. [Concomitant]
     Active Substance: RAMIPRIL
     Indication: ILL-DEFINED DISORDER
     Dosage: UNK UNK, QD
     Route: 065
     Dates: start: 20170210, end: 20180302
  16. HUMULIN M3 [Concomitant]
     Active Substance: INSULIN HUMAN
     Indication: ILL-DEFINED DISORDER
     Dosage: UNK UNK, AS DIRECTED
     Route: 065
     Dates: start: 20101126

REACTIONS (1)
  - Blister [Recovering/Resolving]

NARRATIVE: CASE EVENT DATE: 20180302
